FAERS Safety Report 26091539 (Version 3)
Quarter: 2025Q4

REPORT INFORMATION
  Report Type: Spontaneous
  Country: EU (occurrence: EU)
  Receive Date: 20251126
  Receipt Date: 20251211
  Transmission Date: 20260118
  Serious: Yes (Life-Threatening, Other)
  Sender: AUROBINDO
  Company Number: EU-002147023-NVSC2025ES174098

PATIENT
  Age: 50 Year
  Sex: Female

DRUGS (2)
  1. LETROZOLE [Suspect]
     Active Substance: LETROZOLE
     Indication: Breast cancer
     Dosage: UNK UNK, ONCE A DAY
     Dates: start: 202510, end: 202510
  2. RIBOCICLIB [Suspect]
     Active Substance: RIBOCICLIB
     Indication: Breast cancer
     Dosage: 400 MILLIGRAM, ONCE A DAY
     Dates: start: 202510, end: 202510

REACTIONS (3)
  - Hepatotoxicity [Recovering/Resolving]
  - Hepatic enzyme increased [Unknown]
  - Enzyme level increased [Unknown]
